FAERS Safety Report 25453837 (Version 1)
Quarter: 2025Q2

REPORT INFORMATION
  Report Type: Spontaneous
  Country: PT (occurrence: PT)
  Receive Date: 20250619
  Receipt Date: 20250619
  Transmission Date: 20250716
  Serious: Yes (Other)
  Sender: AUROBINDO
  Company Number: PT-009507513-2290060

PATIENT
  Age: 40 Year
  Sex: Female

DRUGS (2)
  1. CAPECITABINE [Suspect]
     Active Substance: CAPECITABINE
     Indication: Rectal cancer
     Route: 065
  2. PEMBROLIZUMAB [Suspect]
     Active Substance: PEMBROLIZUMAB
     Indication: Rectal cancer
     Route: 065
     Dates: start: 202309

REACTIONS (6)
  - Gastrointestinal toxicity [Unknown]
  - Mucocutaneous toxicity [Unknown]
  - Arthralgia [Unknown]
  - Asthenia [Unknown]
  - Therapy partial responder [Unknown]
  - Alopecia [Unknown]
